FAERS Safety Report 23052335 (Version 2)
Quarter: 2023Q4

REPORT INFORMATION
  Report Type: Spontaneous
  Country: JP (occurrence: JP)
  Receive Date: 20231010
  Receipt Date: 20231219
  Transmission Date: 20240110
  Serious: No
  Sender: FDA-Public Use
  Company Number: JP-002147023-NVSJ2023JP014540

PATIENT

DRUGS (2)
  1. GLYCOPYRRONIUM\INDACATEROL [Suspect]
     Active Substance: GLYCOPYRRONIUM\INDACATEROL
     Indication: Chronic obstructive pulmonary disease
     Dosage: 1DF: GLYCOPYRRONIUM 50UG/INDACATEROL 110UG, UNK
     Route: 048
  2. GLYCOPYRRONIUM\INDACATEROL [Suspect]
     Active Substance: GLYCOPYRRONIUM\INDACATEROL
     Dosage: 1DF: GLYCOPYRRONIUM 50UG/INDACATEROL 110UG, UNK

REACTIONS (1)
  - Incorrect route of product administration [Unknown]
